FAERS Safety Report 8645118 (Version 3)
Quarter: 2012Q4

REPORT INFORMATION
  Report Type: 
  Country: MX (occurrence: MX)
  Receive Date: 20120702
  Receipt Date: 20121029
  Transmission Date: 20130627
  Serious: Yes (Hospitalization, Other)
  Sender: FDA-Public Use
  Company Number: PHHY2012MX055947

PATIENT
  Age: 70 Year
  Sex: Female

DRUGS (3)
  1. CO-DIOVAN [Suspect]
     Indication: HYPERTENSION
     Dosage: 1 DF (80 mg val/ 12.5 mg HCT) QD
     Route: 048
     Dates: start: 20120106
  2. CO-DIOVAN [Suspect]
     Dosage: 1.5 DF, QD
     Route: 048
  3. RASILEZ [Concomitant]
     Dosage: 1 DF, daily

REACTIONS (4)
  - Eye disorder [Not Recovered/Not Resolved]
  - Vomiting [Not Recovered/Not Resolved]
  - Blood pressure inadequately controlled [Unknown]
  - Wrong technique in drug usage process [Unknown]
